FAERS Safety Report 21392966 (Version 2)
Quarter: 2022Q4

REPORT INFORMATION
  Report Type: Spontaneous
  Country: FR (occurrence: FR)
  Receive Date: 20220929
  Receipt Date: 20221227
  Transmission Date: 20230113
  Serious: Yes (Other)
  Sender: FDA-Public Use
  Company Number: FR-BAYER-2022A135652

PATIENT
  Age: 66 Year
  Sex: Female

DRUGS (13)
  1. VITRAKVI [Suspect]
     Active Substance: LAROTRECTINIB
     Indication: Lung adenocarcinoma
     Dosage: 100 MG, BID
     Dates: start: 20220304, end: 20220410
  2. VITRAKVI [Suspect]
     Active Substance: LAROTRECTINIB
     Indication: Lung adenocarcinoma
     Dosage: 100 MG, BID
     Dates: start: 20220427, end: 20220427
  3. VITRAKVI [Suspect]
     Active Substance: LAROTRECTINIB
     Indication: Lung adenocarcinoma
     Dosage: 25 MG, ONCE (IN THE MORNING)
     Route: 048
     Dates: start: 20220920, end: 20220920
  4. VITRAKVI [Suspect]
     Active Substance: LAROTRECTINIB
     Indication: Lung adenocarcinoma
     Dosage: 25 MG, BID (IN THE MORNING AND IN THE EVENING)
     Route: 048
     Dates: start: 20220921, end: 20220927
  5. VITRAKVI [Suspect]
     Active Substance: LAROTRECTINIB
     Indication: Lung adenocarcinoma
     Dosage: 25 MG, OM
     Route: 048
     Dates: start: 20221003, end: 20221003
  6. VITRAKVI [Suspect]
     Active Substance: LAROTRECTINIB
     Indication: Lung adenocarcinoma
     Dosage: 25 MG, QD IN THE EVENING
     Route: 048
     Dates: start: 20221004, end: 20221004
  7. VITRAKVI [Suspect]
     Active Substance: LAROTRECTINIB
     Indication: Lung adenocarcinoma
     Dosage: 25 MG, QD AT MIDDAY
     Route: 048
     Dates: start: 20221004, end: 20221014
  8. VITRAKVI [Suspect]
     Active Substance: LAROTRECTINIB
     Indication: Lung adenocarcinoma
     Dosage: 25 MG, QD AT MIDDAY
     Dates: start: 20221022, end: 20221028
  9. VITRAKVI [Suspect]
     Active Substance: LAROTRECTINIB
     Indication: Lung adenocarcinoma
     Dosage: 25 MG, OM
     Dates: start: 20221116, end: 20221119
  10. LEVOCETIRIZINE [Concomitant]
     Active Substance: LEVOCETIRIZINE
  11. METHYLPREDNISOLONE [Concomitant]
     Active Substance: METHYLPREDNISOLONE
     Dosage: 40 MG, QD
     Route: 048
     Dates: start: 20221006, end: 20221020
  12. METHYLPREDNISOLONE [Concomitant]
     Active Substance: METHYLPREDNISOLONE
     Dosage: 20 MG, OM
     Route: 048
     Dates: start: 20221020, end: 20221028
  13. METHYLPREDNISOLONE [Concomitant]
     Active Substance: METHYLPREDNISOLONE
     Dosage: 20 MG, OM
     Route: 048
     Dates: start: 20221110, end: 20221119

REACTIONS (7)
  - Lung adenocarcinoma [None]
  - Transaminases increased [None]
  - Cell death [None]
  - Cholestasis [None]
  - Haemoglobin decreased [None]
  - Anaemia [None]
  - Product prescribing error [None]

NARRATIVE: CASE EVENT DATE: 20220913
